FAERS Safety Report 12858354 (Version 2)
Quarter: 2016Q4

REPORT INFORMATION
  Report Type: Spontaneous
  Country: US (occurrence: US)
  Receive Date: 20161018
  Receipt Date: 20161224
  Transmission Date: 20170207
  Serious: No
  Sender: FDA-Public Use
  Company Number: ALCN2016US007065

PATIENT
  Sex: Female

DRUGS (1)
  1. GENTEAL MILD [Suspect]
     Active Substance: HYPROMELLOSE 2910 (4000 MPA.S)
     Indication: DRY EYE
     Dosage: 1 GTT, PRN
     Route: 047
     Dates: start: 20161003, end: 20161016

REACTIONS (1)
  - Dry eye [Recovered/Resolved]

NARRATIVE: CASE EVENT DATE: 20161003
